FAERS Safety Report 14980170 (Version 4)
Quarter: 2018Q3

REPORT INFORMATION
  Report Type: Spontaneous
  Country: DE (occurrence: DE)
  Receive Date: 20180606
  Receipt Date: 20180914
  Transmission Date: 20181010
  Serious: Yes (Disabling)
  Sender: FDA-Public Use
  Company Number: DE-BAUSCH-BL-2018-015995

PATIENT
  Age: 22 Year
  Sex: Male

DRUGS (2)
  1. CORTISONE [Concomitant]
     Active Substance: CORTISONE\HYDROCORTISONE
     Indication: PRODUCT USED FOR UNKNOWN INDICATION
  2. PREDNISOLONE. [Suspect]
     Active Substance: PREDNISOLONE
     Indication: RHEUMATOID ARTHRITIS
     Dosage: THE PATIENT TOOK HIGH DOSES. PATIENT HAD BEEN TREATED WITH PREDNISOLONE FOR 8 YEARS
     Route: 065

REACTIONS (1)
  - Paraplegia [Recovered/Resolved]
